FAERS Safety Report 14681458 (Version 2)
Quarter: 2018Q3

REPORT INFORMATION
  Report Type: Spontaneous
  Country: US (occurrence: US)
  Receive Date: 20180326
  Receipt Date: 20180827
  Transmission Date: 20181010
  Serious: Yes (Other)
  Sender: FDA-Public Use
  Company Number: US-REGENERON PHARMACEUTICALS, INC.-2018-19535

PATIENT

DRUGS (11)
  1. EYLEA [Suspect]
     Active Substance: AFLIBERCEPT
     Dosage: AFLIBERCEPT #3 OD
     Dates: start: 201503
  2. EYLEA [Suspect]
     Active Substance: AFLIBERCEPT
     Dosage: AFLIBERCEPT #6 OD
     Dates: start: 201512
  3. EYLEA [Suspect]
     Active Substance: AFLIBERCEPT
     Dosage: AFLIBERCEPT #11 OS
     Dates: start: 201709
  4. EYLEA [Suspect]
     Active Substance: AFLIBERCEPT
     Dosage: AFLIBERCEPT #3 OS
     Dates: start: 201602
  5. EYLEA [Suspect]
     Active Substance: AFLIBERCEPT
     Dosage: AFLIBERCEPT #9 OS
     Dates: start: 201703
  6. EYLEA [Suspect]
     Active Substance: AFLIBERCEPT
     Indication: DIABETIC RETINAL OEDEMA
     Dosage: AFLIBERCEPT #1 OD
     Dates: start: 201412
  7. EYLEA [Suspect]
     Active Substance: AFLIBERCEPT
     Dosage: AFLIBERCEPT #1 OS
     Dates: start: 201512
  8. EYLEA [Suspect]
     Active Substance: AFLIBERCEPT
     Dosage: AFLIBERCEPT #8 OD
     Dates: start: 201602
  9. EYLEA [Suspect]
     Active Substance: AFLIBERCEPT
     Dosage: AFLIBERCEPT #15 OS
     Dates: start: 201803
  10. EYLEA [Suspect]
     Active Substance: AFLIBERCEPT
     Dosage: AFLIBERCEPT #5 OD
     Dates: start: 201506
  11. EYLEA [Suspect]
     Active Substance: AFLIBERCEPT
     Dosage: AFLIBERCEPT #6 OS
     Dates: start: 201606

REACTIONS (3)
  - Vitreous haemorrhage [Unknown]
  - Blindness unilateral [Unknown]
  - Vision blurred [Unknown]
